FAERS Safety Report 5426450-2 (Version None)
Quarter: 2007Q3

REPORT INFORMATION
  Report Type: 
  Country: None (occurrence: None)
  Receive Date: 20070731
  Receipt Date: 20070627
  Transmission Date: 20080115
  Serious: No
  Sender: FDA-Public Use
  Company Number: US200706006269

PATIENT
  Sex: Female

DRUGS (1)
  1. BYETTA [Suspect]
     Indication: TYPE 2 DIABETES MELLITUS
     Dosage: 10 UG, DAILY (1/D), SUBCUTANEOUS 10 UG, DAILY (1/D)
     Route: 058

REACTIONS (3)
  - ACCIDENTAL OVERDOSE [None]
  - DECREASED APPETITE [None]
  - INCORRECT DOSE ADMINISTERED [None]
